FAERS Safety Report 8448255-0 (Version None)
Quarter: 2012Q2

REPORT INFORMATION
  Report Type: 
  Country: None (occurrence: None)
  Receive Date: 20120619
  Receipt Date: 20120523
  Transmission Date: 20120825
  Serious: No
  Sender: FDA-Public Use
  Company Number: US-FOUGERA-2012FO001117

PATIENT
  Age: 87 Year
  Sex: Male
  Weight: 70.76 kg

DRUGS (5)
  1. RANITIDINE [Concomitant]
     Indication: GASTROOESOPHAGEAL REFLUX DISEASE
     Route: 048
  2. ASPIRIN [Concomitant]
     Indication: ARTHRALGIA
     Route: 048
  3. TAMSULOSIN HCL [Concomitant]
     Indication: PRODUCT USED FOR UNKNOWN INDICATION
     Route: 048
  4. NAPROXEN (ALEVE) [Concomitant]
     Indication: ARTHRALGIA
  5. IMIQUIMOD [Suspect]
     Indication: PRECANCEROUS SKIN LESION
     Route: 061
     Dates: start: 20120519

REACTIONS (4)
  - APPLICATION SITE DISCOLOURATION [None]
  - SOMNOLENCE [None]
  - SKIN EXFOLIATION [None]
  - FATIGUE [None]
